FAERS Safety Report 20746303 (Version 2)
Quarter: 2022Q2

REPORT INFORMATION
  Report Type: Report from Study
  Country: JP (occurrence: JP)
  Receive Date: 20220425
  Receipt Date: 20220523
  Transmission Date: 20220721
  Serious: Yes (Death, Other)
  Sender: FDA-Public Use
  Company Number: JP-PFIZER INC-202200595839

PATIENT

DRUGS (2)
  1. PACLITAXEL [Suspect]
     Active Substance: PACLITAXEL
     Indication: Breast cancer
     Dosage: 90 MG/M2, ON DAYS 1, 8, AND 15 OF EACH CYCLE,FOUR TO SIX CYCLES OF WEEKLY
     Route: 042
  2. BEVACIZUMAB [Suspect]
     Active Substance: BEVACIZUMAB
     Indication: Breast cancer
     Dosage: 10 MG/KG, ON DAYS 1 AND 15 OF EACH CYCLE
     Route: 042

REACTIONS (1)
  - Duodenal ulcer perforation [Fatal]
